FAERS Safety Report 18006698 (Version 1)
Quarter: 2020Q3

REPORT INFORMATION
  Report Type: Spontaneous
  Country: US (occurrence: US)
  Receive Date: 20200709
  Receipt Date: 20200709
  Transmission Date: 20201103
  Serious: No
  Sender: FDA-Public Use
  Company Number: None

PATIENT

DRUGS (2)
  1. EPHEDRINE EPHEDRINE SULFATE [Suspect]
     Active Substance: EPHEDRINE SULFATE
  2. PHENYLEPHRINE [Suspect]
     Active Substance: PHENYLEPHRINE HYDROCHLORIDE
     Dosage: ?          OTHER STRENGTH:1000 MCG/10 ML;?

REACTIONS (1)
  - Product label confusion [None]
